FAERS Safety Report 14661397 (Version 6)
Quarter: 2018Q3

REPORT INFORMATION
  Report Type: Spontaneous
  Country: GB (occurrence: GB)
  Receive Date: 20180320
  Receipt Date: 20180705
  Transmission Date: 20181010
  Serious: Yes (Hospitalization)
  Sender: FDA-Public Use
  Company Number: GB-LPDUSPRD-20180376

PATIENT
  Age: 81 Year
  Sex: Male
  Weight: 99.6 kg

DRUGS (25)
  1. EPLERENONE. [Concomitant]
     Active Substance: EPLERENONE
     Dosage: 25 MG QD
     Route: 048
  2. DOSULEPIN HYDROCHLORIDE [Concomitant]
     Active Substance: DOTHIEPIN HYDROCHLORIDE
     Dosage: 75 MG (75 MG,1 IN 1 D)
     Route: 048
     Dates: start: 20180220, end: 20180313
  3. FATS NOS, VITAMINS NOS, MINERALS NOS, CARBOHYDRATES NOS, PROTEINS NOS [Concomitant]
     Dosage: (125 ML,3 IN 1 D)
     Route: 048
     Dates: start: 20180309
  4. ACTRAPID [Concomitant]
     Active Substance: INSULIN HUMAN
     Dosage: (4 IU,PRN (AS NEEDED))
     Route: 058
     Dates: start: 20180221, end: 20180221
  5. MERITONE SHAKE [Concomitant]
     Dosage: UNKNOWN
     Route: 065
  6. SENNA ALEXANDRIA [Concomitant]
     Dosage: 15 MG QD
     Route: 048
  7. SODIUM CHLORIDE. [Concomitant]
     Active Substance: SODIUM CHLORIDE
     Dosage: (ML,4 IN 1 D)
     Route: 065
     Dates: start: 20180301, end: 20180302
  8. HEPARIN [Concomitant]
     Active Substance: HEPARIN SODIUM
     Dosage: (5000 IU,2 IN 1 D)
     Route: 058
     Dates: start: 20180220, end: 20180223
  9. HUMULIN L [Concomitant]
     Active Substance: INSULIN HUMAN
     Dosage: (30 IU,MORNING DOSE)
     Route: 058
     Dates: start: 20180309, end: 20180313
  10. SIMVASTATIN. [Concomitant]
     Active Substance: SIMVASTATIN
     Dosage: (40 MG,1 IN 1 D)
     Route: 048
     Dates: start: 20180220
  11. SALMETEROL [Concomitant]
     Active Substance: SALMETEROL
     Dosage: 2 PUFF (2 IN 1 D)
     Route: 065
     Dates: start: 20180220
  12. BECLOMETASONE DIPROPIONATE [Concomitant]
     Active Substance: BECLOMETHASONE DIPROPIONATE
     Dosage: 2 PUFF (2 IN 1 D)
     Route: 065
     Dates: start: 20180220
  13. APIXABAN [Concomitant]
     Active Substance: APIXABAN
     Dosage: 10 MG (5 MG,2 IN 1 D)
     Route: 048
     Dates: start: 20180220
  14. BISOPROLOL [Concomitant]
     Active Substance: BISOPROLOL
     Dosage: (10 MG,2 IN 1 D)
     Route: 048
     Dates: start: 20180220, end: 20180318
  15. GENTAMICIN. [Concomitant]
     Active Substance: GENTAMICIN
     Dosage: 80 MG,ONCE
     Route: 030
     Dates: start: 20180327, end: 20180327
  16. CITALOPRAM [Concomitant]
     Active Substance: CITALOPRAM HYDROBROMIDE
     Dosage: 20 MG (20 MG,1 IN 1 D)
     Route: 048
     Dates: start: 20180220
  17. METFORMIN [Concomitant]
     Active Substance: METFORMIN HYDROCHLORIDE
     Dosage: 1000 MG (500 MG,2 IN 1 D)
     Route: 048
     Dates: start: 20180307
  18. MIRTAZAPINE. [Concomitant]
     Active Substance: MIRTAZAPINE
     Dosage: 15 MG (15 MG,1 IN 1 D)
     Route: 048
     Dates: start: 20180319, end: 20180326
  19. SALBUTAMOL [Concomitant]
     Active Substance: ALBUTEROL
     Dosage: 15 MG (5 MG,3 IN 1 D)
     Route: 065
     Dates: start: 20180302, end: 20180303
  20. DOCUSATE SODIUM. [Concomitant]
     Active Substance: DOCUSATE SODIUM
     Dosage: 400 MG (200 MG,2 IN 1D
     Route: 065
     Dates: start: 20180323
  21. FERINJECT [Suspect]
     Active Substance: FERRIC CARBOXYMALTOSE
     Dosage: 20 ML
     Route: 042
     Dates: start: 20180216, end: 20180216
  22. FUROSEMIDE. [Concomitant]
     Active Substance: FUROSEMIDE
     Dosage: (40 OTHER,1 IN 1 D)
     Route: 048
     Dates: start: 20180227, end: 20180323
  23. DIGOXIN. [Concomitant]
     Active Substance: DIGOXIN
     Dosage: 125 MCG (125 MCG,1 IN 1 D)
     Route: 048
     Dates: start: 20180321
  24. HUMULIN M3 [Concomitant]
     Active Substance: INSULIN HUMAN
     Dosage: (30 IU,1 IN 1 D)
     Route: 058
     Dates: start: 20180220, end: 20180221
  25. ALOGLIPTIN. [Concomitant]
     Active Substance: ALOGLIPTIN
     Dosage: 2.5 MG (2.5 MG,1 IN 1 D)
     Route: 048
     Dates: start: 20180320

REACTIONS (3)
  - Diarrhoea [Recovered/Resolved]
  - Urinary tract infection [Recovered/Resolved]
  - Acute kidney injury [Recovered/Resolved]

NARRATIVE: CASE EVENT DATE: 20180219
